FAERS Safety Report 22654795 (Version 1)
Quarter: 2023Q2

REPORT INFORMATION
  Report Type: Spontaneous
  Country: US (occurrence: None)
  Receive Date: 20230628
  Receipt Date: 20230628
  Transmission Date: 20230722
  Serious: Yes (Death)
  Sender: FDA-Public Use
  Company Number: None

PATIENT
  Age: 62 Year
  Sex: Male

DRUGS (2)
  1. MYCOPHENOLATE MOFETIL [Suspect]
     Active Substance: MYCOPHENOLATE MOFETIL
     Indication: Organ transplant
     Dosage: FREQUENCY : TWICE A DAY;?
     Route: 048
     Dates: start: 20220817, end: 20230613
  2. TACROLIMUS [Suspect]
     Active Substance: TACROLIMUS

REACTIONS (1)
  - Death [None]

NARRATIVE: CASE EVENT DATE: 20230613
